FAERS Safety Report 6146362-9 (Version None)
Quarter: 2009Q2

REPORT INFORMATION
  Report Type: 
  Country: None (occurrence: None)
  Receive Date: 20090407
  Receipt Date: 20090309
  Transmission Date: 20091009
  Serious: Yes (Death, Hospitalization)
  Sender: FDA-Public Use
  Company Number: PE-PFIZER INC-2009179672

PATIENT

DRUGS (4)
  1. DOXAZOSIN MESILATE [Suspect]
     Indication: BENIGN PROSTATIC HYPERPLASIA
     Dates: start: 20071220, end: 20090206
  2. DIGOXIN [Concomitant]
  3. CAPTOPRIL [Concomitant]
  4. ASPIRIN [Concomitant]

REACTIONS (2)
  - CEREBROVASCULAR ACCIDENT [None]
  - PNEUMONIA [None]
